FAERS Safety Report 4891939-1 (Version None)
Quarter: 2006Q1

REPORT INFORMATION
  Report Type: 
  Country: None (occurrence: None)
  Receive Date: 20060123
  Receipt Date: 20060111
  Transmission Date: 20060701
  Serious: Yes (Other)
  Sender: FDA-Public Use
  Company Number: 2006006648

PATIENT
  Age: 69 Year
  Sex: Male

DRUGS (2)
  1. AMLODIPINE [Suspect]
     Indication: HYPERTENSION
     Dosage: (5 MG ) , ORAL
     Route: 048
     Dates: start: 20000101, end: 20050131
  2. ATENOLOL [Concomitant]

REACTIONS (1)
  - HEPATIC STEATOSIS [None]
